FAERS Safety Report 6234175-9 (Version None)
Quarter: 2009Q2

REPORT INFORMATION
  Report Type: 
  Country: None (occurrence: None)
  Receive Date: 20090618
  Receipt Date: 20090609
  Transmission Date: 20091009
  Serious: Yes (Other)
  Sender: FDA-Public Use
  Company Number: CN-CELGENEUS-035-20785-09051710

PATIENT

DRUGS (10)
  1. THALOMID [Suspect]
     Indication: MULTIPLE MYELOMA
     Route: 048
  2. BORTEZOMIB [Suspect]
     Indication: MULTIPLE MYELOMA
     Dosage: 1.01-1.09 MG/(M^2.D)
     Route: 041
  3. BORTEZOMIB [Suspect]
     Dosage: 0.92-1.09MG/(M^2.D)
     Route: 041
  4. BORTEZOMIB [Suspect]
     Dosage: 0.95-1.09MG/(M^2.D)
     Route: 041
  5. BORTEZOMIB [Suspect]
     Dosage: 1.0-1.3MG/M^2
     Route: 041
  6. METHYLPREDNISOLONE [Suspect]
     Indication: MULTIPLE MYELOMA
     Dosage: 120-300MG
     Route: 065
  7. CISPLATIN [Suspect]
     Indication: MULTIPLE MYELOMA
     Route: 065
  8. ETOPOSIDE [Suspect]
     Indication: MULTIPLE MYELOMA
     Route: 065
  9. CYCLOPHOSPHAMIDE [Suspect]
     Indication: MULTIPLE MYELOMA
     Route: 041
  10. DEXAMETHASONE [Suspect]
     Indication: MULTIPLE MYELOMA
     Route: 048

REACTIONS (20)
  - ACUTE HEPATIC FAILURE [None]
  - ANOREXIA [None]
  - DIARRHOEA [None]
  - EPILEPSY [None]
  - FATIGUE [None]
  - GASTROINTESTINAL DISORDER [None]
  - HEPATIC FUNCTION ABNORMAL [None]
  - HERPES ZOSTER [None]
  - HYPOAESTHESIA [None]
  - LUNG INFECTION [None]
  - NAUSEA [None]
  - NEUROPATHY PERIPHERAL [None]
  - PAIN [None]
  - PERIPHERAL NERVE LESION [None]
  - PYREXIA [None]
  - RASH [None]
  - RENAL FAILURE ACUTE [None]
  - SENSORY LOSS [None]
  - THROMBOCYTOPENIA [None]
  - WHITE BLOOD CELL COUNT DECREASED [None]
